FAERS Safety Report 10398890 (Version 1)
Quarter: 2014Q1

REPORT INFORMATION
  Report Type: Spontaneous
  Country: US (occurrence: None)
  Receive Date: 20130507
  Receipt Date: 20130507
  Transmission Date: 20141002
  Serious: Yes (Other)
  Sender: FDA-Public Use
  Company Number: PHEH2012US001770

PATIENT
  Age: 32 Year
  Sex: Female

DRUGS (1)
  1. TASIGNA (AMN107) CAPSULE [Suspect]
     Indication: CHRONIC MYELOID LEUKAEMIA
     Route: 048
     Dates: start: 20111024

REACTIONS (4)
  - Neuropathy peripheral [None]
  - Limb discomfort [None]
  - Burning sensation [None]
  - Pain [None]
